FAERS Safety Report 4992230-5 (Version None)
Quarter: 2006Q2

REPORT INFORMATION
  Report Type: 
  Country: None (occurrence: None)
  Receive Date: 20060502
  Receipt Date: 20060418
  Transmission Date: 20061013
  Serious: Yes (Hospitalization)
  Sender: FDA-Public Use
  Company Number: 2006S1003455

PATIENT
  Age: 50 Year
  Sex: Female

DRUGS (7)
  1. FENTANYL TRANSDERMAL SYSTEM [Suspect]
     Indication: BONE PAIN
     Dosage: 25 UG/HR; Q3D; TRANS
     Route: 062
     Dates: start: 20050301
  2. ANASTROZOLE [Concomitant]
  3. PARACETAMOL/OXYCODONE [Concomitant]
  4. HYDROCHLORIDE [Concomitant]
  5. HYDROMORPHONE HCL [Concomitant]
  6. LORAZEPAM [Concomitant]
  7. ONDANSETRON HCL [Concomitant]

REACTIONS (2)
  - BILIARY DILATATION [None]
  - PANCREATITIS [None]
